FAERS Safety Report 5410126-1 (Version None)
Quarter: 2007Q3

REPORT INFORMATION
  Report Type: 
  Country: None (occurrence: None)
  Receive Date: 20070713
  Receipt Date: 20070406
  Transmission Date: 20080115
  Serious: No
  Sender: FDA-Public Use
  Company Number: 2007SP001241

PATIENT
  Age: 21 Year
  Sex: Male
  Weight: 70.3075 kg

DRUGS (3)
  1. LUNESTA [Suspect]
     Indication: INSOMNIA
     Dosage: 2 MG;PRN;ORAL; 3 MG;PRN;ORAL
     Route: 048
     Dates: start: 20051101, end: 20051201
  2. LUNESTA [Suspect]
     Indication: INSOMNIA
     Dosage: 2 MG;PRN;ORAL; 3 MG;PRN;ORAL
     Route: 048
     Dates: start: 20051201
  3. ZOLPIDEM TARTRATE [Concomitant]

REACTIONS (1)
  - REBOUND EFFECT [None]
